FAERS Safety Report 9437977 (Version 1)
Quarter: 2013Q3

REPORT INFORMATION
  Report Type: Spontaneous
  Country: US (occurrence: US)
  Receive Date: 20130802
  Receipt Date: 20130802
  Transmission Date: 20140515
  Serious: Yes (Hospitalization)
  Sender: FDA-Public Use
  Company Number: US-BRISTOL-MYERS SQUIBB COMPANY-18917005

PATIENT
  Age: 58 Year
  Sex: Male
  Weight: 141.5 kg

DRUGS (9)
  1. COUMADIN [Suspect]
     Indication: THROMBOSIS PROPHYLAXIS
     Route: 048
     Dates: start: 1997
  2. LASIX [Concomitant]
     Dates: start: 2009
  3. CRESTOR [Concomitant]
     Dates: start: 2009
  4. ZETIA [Concomitant]
     Dates: start: 201104
  5. LOPRESSOR [Concomitant]
     Dates: start: 201112
  6. PROTONIX [Concomitant]
     Dates: start: 201012
  7. ACYCLOVIR [Concomitant]
     Dates: start: 20120918
  8. COMPAZINE [Concomitant]
     Dates: start: 20120919
  9. ZOFRAN [Concomitant]
     Dates: start: 201209

REACTIONS (1)
  - Haemothorax [Unknown]
